FAERS Safety Report 20759041 (Version 1)
Quarter: 2022Q2

REPORT INFORMATION
  Report Type: Spontaneous
  Country: US (occurrence: US)
  Receive Date: 20220427
  Receipt Date: 20220427
  Transmission Date: 20220720
  Serious: No
  Sender: FDA-Public Use
  Company Number: US-BioHaven Pharmaceuticals-2021BHV003103

PATIENT
  Age: 38 Year

DRUGS (3)
  1. NURTEC ODT [Suspect]
     Active Substance: RIMEGEPANT SULFATE
     Indication: Migraine prophylaxis
     Dosage: PATIENT^S PHYSICIAN TOLD THE PATIENT TO KEEP NURTEC AND USE IT IN CASE SHE NEEDS IT FOR ONSET OF MIG
     Route: 065
     Dates: start: 202108
  2. COVID-19 Vaccine [Concomitant]
     Indication: COVID-19 immunisation
     Route: 065
     Dates: start: 202109
  3. INFLUENZA VIRUS VACCINE [Concomitant]
     Active Substance: INFLUENZA VIRUS VACCINE
     Indication: Influenza immunisation
     Route: 065
     Dates: start: 20211212

REACTIONS (1)
  - Drug ineffective [Unknown]
